FAERS Safety Report 8977867 (Version 1)
Quarter: 2012Q4

REPORT INFORMATION
  Report Type: 
  Country: DE (occurrence: GB)
  Receive Date: 20121219
  Receipt Date: 20121219
  Transmission Date: 20130627
  Serious: Yes (Other)
  Sender: FDA-Public Use
  Company Number: GB-FRI-1000030648

PATIENT
  Sex: Female

DRUGS (7)
  1. MEMANTINE [Suspect]
     Indication: DEMENTIA ALZHEIMER^S TYPE
     Dosage: 10 mg
     Route: 048
     Dates: start: 20120106, end: 20120418
  2. RISPERIDONE [Suspect]
     Indication: PSYCHOTIC DISORDER
     Dosage: 1.5 mg
     Route: 048
     Dates: end: 201201
  3. RISPERIDONE [Suspect]
     Indication: PSYCHOTIC DISORDER
     Dosage: 0.5 mg
     Route: 048
     Dates: start: 20120403, end: 20120411
  4. SIMVASTATIN [Concomitant]
     Dosage: 40 mg
     Route: 048
  5. CALCICHEW D3 FORTE [Concomitant]
     Dosage: 1 DF
     Route: 048
  6. ALENDRONIC ACID [Concomitant]
     Dosage: 70 mg weekly
     Route: 048
  7. ASPIRIN [Concomitant]
     Dosage: 75 mg
     Route: 048
     Dates: start: 20120314

REACTIONS (3)
  - Orthostatic hypotension [Not Recovered/Not Resolved]
  - Sinus bradycardia [Unknown]
  - Feeling abnormal [Unknown]
